FAERS Safety Report 6930707-3 (Version None)
Quarter: 2010Q3

REPORT INFORMATION
  Report Type: 
  Country: None (occurrence: None)
  Receive Date: 20100818
  Receipt Date: 20100811
  Transmission Date: 20110219
  Serious: Yes (Life-Threatening, Hospitalization)
  Sender: FDA-Public Use
  Company Number: US-GILEAD-2010-0030798

PATIENT
  Sex: Female

DRUGS (9)
  1. LETAIRIS [Suspect]
     Indication: PULMONARY ARTERIAL HYPERTENSION
     Route: 048
     Dates: start: 20100311
  2. TREPROSTINIL [Concomitant]
  3. SILDENAFIL CITRATE [Concomitant]
  4. LASIX [Concomitant]
  5. ASPIRIN [Concomitant]
  6. CALCIUM/VITAMIN D [Concomitant]
  7. LEXAPRO [Concomitant]
  8. NEURONTIN [Concomitant]
  9. PREDNISONE [Concomitant]

REACTIONS (1)
  - CHEST PAIN [None]
